FAERS Safety Report 6421881-6 (Version None)
Quarter: 2009Q4

REPORT INFORMATION
  Report Type: 
  Country: None (occurrence: None)
  Receive Date: 20091029
  Receipt Date: 20091029
  Transmission Date: 20100525
  Serious: Yes (Other)
  Sender: FDA-Public Use
  Company Number: None

PATIENT
  Age: 16 Year
  Sex: Male
  Weight: 72.5755 kg

DRUGS (1)
  1. ABILIFY [Suspect]
     Indication: BIPOLAR DISORDER
     Dosage: 10MG 1QD PO
     Route: 048
     Dates: start: 20090912, end: 20090917

REACTIONS (4)
  - DYSTONIA [None]
  - EMOTIONAL DISORDER [None]
  - INJURY [None]
  - TRANSIENT ISCHAEMIC ATTACK [None]
